FAERS Safety Report 16959986 (Version 1)
Quarter: 2019Q4

REPORT INFORMATION
  Report Type: Spontaneous
  Country: CA (occurrence: CA)
  Receive Date: 20191025
  Receipt Date: 20191025
  Transmission Date: 20200122
  Serious: Yes (Hospitalization, Other)
  Sender: FDA-Public Use
  Company Number: CA-TEVA-2019-CA-1126716

PATIENT
  Age: 71 Year
  Sex: Female
  Weight: 47 kg

DRUGS (19)
  1. LACTULOSE. [Concomitant]
     Active Substance: LACTULOSE
  2. WARFARIN [Concomitant]
     Active Substance: WARFARIN
  3. DOCUSATE SODIUM. [Concomitant]
     Active Substance: DOCUSATE SODIUM
  4. LEVOTHYROXINE. [Concomitant]
     Active Substance: LEVOTHYROXINE
  5. WARFARIN [Concomitant]
     Active Substance: WARFARIN
  6. QUININE [Suspect]
     Active Substance: QUININE
     Indication: MUSCLE SPASMS
     Dosage: 200 MILLIGRAM DAILY;
     Route: 048
  7. LEVOTHYROXINE. [Concomitant]
     Active Substance: LEVOTHYROXINE
  8. SENNOSIDES. [Concomitant]
     Active Substance: SENNOSIDES
  9. ACETAMINOPHEN. [Concomitant]
     Active Substance: ACETAMINOPHEN
  10. CALCIUM [Concomitant]
     Active Substance: CALCIUM
  11. LACTULOSE. [Concomitant]
     Active Substance: LACTULOSE
  12. PENTOXIFYLLINE. [Concomitant]
     Active Substance: PENTOXIFYLLINE
  13. VITAMIN D [Concomitant]
     Active Substance: VITAMIN D NOS
  14. SENNOSIDES. [Concomitant]
     Active Substance: SENNOSIDES
  15. VITAMIN D [Concomitant]
     Active Substance: VITAMIN D NOS
  16. ACETYLSALICYLIC ACID [Concomitant]
     Active Substance: ASPIRIN
  17. PENTOXIFYLLINE. [Concomitant]
     Active Substance: PENTOXIFYLLINE
  18. FLUCONAZOLE. [Suspect]
     Active Substance: FLUCONAZOLE
     Indication: OESOPHAGEAL CANDIDIASIS
     Route: 048
  19. ESOMEPRAZOLE. [Concomitant]
     Active Substance: ESOMEPRAZOLE MAGNESIUM

REACTIONS (3)
  - Hypokalaemia [Unknown]
  - Electrocardiogram QT prolonged [Unknown]
  - International normalised ratio increased [Unknown]
